FAERS Safety Report 21824076 (Version 3)
Quarter: 2023Q1

REPORT INFORMATION
  Report Type: Spontaneous
  Country: DE (occurrence: DE)
  Receive Date: 20230105
  Receipt Date: 20230127
  Transmission Date: 20230418
  Serious: Yes (Hospitalization, Other)
  Sender: FDA-Public Use
  Company Number: DE-BoehringerIngelheim-2023-BI-211167

PATIENT
  Age: 78 Year
  Sex: Female
  Weight: 75 kg

DRUGS (10)
  1. JARDIANCE [Suspect]
     Active Substance: EMPAGLIFLOZIN
     Indication: Diabetes mellitus
  2. JARDIANCE [Suspect]
     Active Substance: EMPAGLIFLOZIN
     Indication: Chronic kidney disease
  3. JANUMET [Concomitant]
     Active Substance: METFORMIN HYDROCHLORIDE\SITAGLIPTIN PHOSPHATE
     Indication: Diabetes mellitus
     Dosage: 100/2000 MG DAILY
     Route: 048
     Dates: start: 2011
  4. Antilia 10/10 mg [Concomitant]
     Indication: Hypercholesterolaemia
     Dosage: 10/10 MG DAILY
     Route: 048
     Dates: start: 201904
  5. EXFORGE [Concomitant]
     Active Substance: AMLODIPINE BESYLATE\VALSARTAN
     Indication: Hypertension
     Dosage: 5/160 MG DAILY
     Route: 048
     Dates: start: 201901
  6. CARVEDILOL [Concomitant]
     Active Substance: CARVEDILOL
     Indication: Hypertension
     Route: 048
     Dates: start: 2011
  7. L-Thyroxin 100 mg [Concomitant]
     Indication: Hypothyroidism
     Route: 048
     Dates: start: 2011
  8. Godamed 100 mg [Concomitant]
     Indication: Coronary artery disease
     Route: 048
     Dates: start: 2011
  9. LASIX [Concomitant]
     Active Substance: FUROSEMIDE
     Indication: Hypertension
     Route: 048
     Dates: start: 2011
  10. LASIX [Concomitant]
     Active Substance: FUROSEMIDE
     Indication: Oedema

REACTIONS (5)
  - Diarrhoea [Recovered/Resolved]
  - Weight decreased [Unknown]
  - Abdominal pain [Recovered/Resolved]
  - Flatulence [Recovered/Resolved]
  - Off label use [Unknown]

NARRATIVE: CASE EVENT DATE: 20211220
